FAERS Safety Report 4434372-9 (Version None)
Quarter: 2004Q3

REPORT INFORMATION
  Report Type: 
  Country: None (occurrence: None)
  Receive Date: 20040726
  Receipt Date: 20040428
  Transmission Date: 20050211
  Serious: No
  Sender: FDA-Public Use
  Company Number: USA040464163

PATIENT
  Age: 69 Year
  Sex: Female
  Weight: 46 kg

DRUGS (4)
  1. FORTEO [Suspect]
     Indication: BONE DISORDER
     Dosage: 20 UG DAY
     Dates: start: 20040329
  2. NOVODILTAZEM (DILTIAZEM HYDROCHLORIDE) [Concomitant]
  3. DIGITEX (DIGOXIN) [Concomitant]
  4. LIPITOR [Concomitant]

REACTIONS (5)
  - BRONCHITIS [None]
  - DIZZINESS [None]
  - FEELING ABNORMAL [None]
  - MUSCLE CRAMP [None]
  - TINNITUS [None]
